FAERS Safety Report 15757947 (Version 1)
Quarter: 2018Q4

REPORT INFORMATION
  Report Type: Spontaneous
  Country: GB (occurrence: GB)
  Receive Date: 20181225
  Receipt Date: 20181225
  Transmission Date: 20190205
  Serious: Yes (Hospitalization)
  Sender: FDA-Public Use
  Company Number: GB-ACCORD-096904

PATIENT
  Age: 49 Year
  Sex: Female

DRUGS (8)
  1. SALIVIX [Concomitant]
     Route: 048
  2. NYSTATIN/NYSTATIN/LIPOSOME [Concomitant]
     Dosage: 100,000UNITS/ML  4 TIMES A DAY
  3. DOCETAXEL. [Suspect]
     Active Substance: DOCETAXEL
     Indication: PRODUCT USED FOR UNKNOWN INDICATION
     Dosage: PATIENTS FIRST CYCLE.
  4. CODEINE [Concomitant]
     Active Substance: CODEINE
     Dosage: ONE TWO-FOUR TIMES A DAY.
  5. DIFFLAM [Concomitant]
     Active Substance: BENZYDAMINE HYDROCHLORIDE
     Dosage: EVERY ONE AND A HALF TO THREE HOURS AS REQUIRED
  6. LANSOPRAZOLE. [Concomitant]
     Active Substance: LANSOPRAZOLE
     Route: 048
  7. PARACETAMOL [Concomitant]
     Active Substance: ACETAMINOPHEN
  8. GAVISCON ADVANCE [Concomitant]
     Active Substance: POTASSIUM BICARBONATE\SODIUM ALGINATE
     Dosage: 10ML AT NIGHT  AND 5ML AFTER EACH MEAL.
     Route: 048

REACTIONS (5)
  - Neutropenic sepsis [Unknown]
  - Chills [Unknown]
  - Diarrhoea [Unknown]
  - Pyrexia [Unknown]
  - Nausea [Unknown]
